FAERS Safety Report 5689169-9 (Version None)
Quarter: 2008Q1

REPORT INFORMATION
  Report Type: 
  Country: None (occurrence: None)
  Receive Date: 20080331
  Receipt Date: 20080325
  Transmission Date: 20080703
  Serious: Yes (Other)
  Sender: FDA-Public Use
  Company Number: US-KINGPHARMUSA00001-K200800359

PATIENT

DRUGS (1)
  1. CORGARD [Suspect]
     Indication: VENTRICULAR TACHYCARDIA
     Dosage: 80 MG, UNK
     Route: 048
     Dates: start: 20070713

REACTIONS (1)
  - HYPOGLYCAEMIC UNCONSCIOUSNESS [None]
